FAERS Safety Report 8546202-4 (Version None)
Quarter: 2012Q3

REPORT INFORMATION
  Report Type: 
  Country: None (occurrence: None)
  Receive Date: 20120727
  Receipt Date: 20120725
  Transmission Date: 20120928
  Serious: Yes (Hospitalization)
  Sender: FDA-Public Use
  Company Number: PHHY2012GB064002

PATIENT
  Age: 63 Year
  Sex: Male
  Weight: 69 kg

DRUGS (2)
  1. ASPIRIN [Concomitant]
  2. LAMOTRIGINE [Suspect]
     Indication: CONVULSION
     Dosage: 75 MG
     Route: 048
     Dates: start: 20110901

REACTIONS (1)
  - ATRIAL FIBRILLATION [None]
